FAERS Safety Report 8439321 (Version 2)
Quarter: 2013Q2

REPORT INFORMATION
  Report Type: Spontaneous
  Country: US (occurrence: None)
  Receive Date: 20120104
  Receipt Date: 20120508
  Transmission Date: 20140414
  Serious: No
  Sender: FDA-Public Use
  Company Number: 2011HGS-002893

PATIENT
  Age: 44 Year
  Sex: Female

DRUGS (6)
  1. BENLYSTA [Suspect]
     Indication: SYSTEMIC LUPUS ERYTHEMATOSUS
     Dosage: 10 MG/KG, 1 IN 14 D, INTRAVENOUS DRIP
     Route: 041
     Dates: start: 20111130
  2. METHOTREXATE  (METHOTREXATE) (METHOTREXATE) [Concomitant]
  3. IBUPROFEN (IBUPROFEN) (IBUPROFEN) [Concomitant]
  4. NEXIUM (ESOMEPRAZOLE MAGNEISUM)(ESOMEPRAZOLE SODIUM) [Concomitant]
  5. LYRICA (PREGAMBLIN) (PREGAMBLIN) [Concomitant]
  6. ZYRTEC (CERTIRIZINE HYDROCHLORIDE) (CETIRIZINE HYDROCHLORIDE) [Concomitant]

REACTIONS (4)
  - CHEST DISCOMFORT [None]
  - BURNING SENSATION [None]
  - ANXIETY [None]
  - HEADACHE [None]
